FAERS Safety Report 10190047 (Version 2)
Quarter: 2014Q3

REPORT INFORMATION
  Report Type: Report from Study
  Country: BR (occurrence: BR)
  Receive Date: 20140522
  Receipt Date: 20140724
  Transmission Date: 20150326
  Serious: Yes (Other)
  Sender: FDA-Public Use
  Company Number: PHHY2014BR060049

PATIENT
  Sex: Female
  Weight: 68 kg

DRUGS (2)
  1. ATENOLOL. [Concomitant]
     Active Substance: ATENOLOL
     Indication: BLOOD PRESSURE ABNORMAL
     Dosage: UNK UKN, UNK
  2. RITALIN [Suspect]
     Active Substance: METHYLPHENIDATE HYDROCHLORIDE
     Indication: INTRAOCULAR PRESSURE INCREASED
     Dosage: 1 DF, Q12H (ONE TABLET EVERY 12 HOURS)
     Route: 048

REACTIONS (7)
  - Retinal detachment [Unknown]
  - Blood pressure fluctuation [Unknown]
  - Glaucoma [Unknown]
  - Blindness unilateral [Unknown]
  - Cataract [Unknown]
  - Sensory loss [Unknown]
  - Drug ineffective [Unknown]
